FAERS Safety Report 7389883-3 (Version None)
Quarter: 2011Q2

REPORT INFORMATION
  Report Type: 
  Country: None (occurrence: None)
  Receive Date: 20110401
  Receipt Date: 20110321
  Transmission Date: 20111010
  Serious: Yes (Other)
  Sender: FDA-Public Use
  Company Number: US-MYLANLABS-2011S1005942

PATIENT
  Age: 64 Year
  Sex: Female

DRUGS (4)
  1. SULINDAC [Suspect]
     Indication: MUSCULOSKELETAL PAIN
     Route: 048
     Dates: start: 20110211
  2. SULINDAC [Suspect]
     Route: 048
     Dates: start: 20101001
  3. SULINDAC [Suspect]
     Indication: ARTHRITIS
     Route: 048
     Dates: start: 20110211
  4. SULINDAC [Suspect]
     Route: 048
     Dates: start: 20101001

REACTIONS (2)
  - ABDOMINAL PAIN UPPER [None]
  - CROHN'S DISEASE [None]
